FAERS Safety Report 11094803 (Version 1)
Quarter: 2015Q2

REPORT INFORMATION
  Report Type: Spontaneous
  Country: None (occurrence: US)
  Receive Date: 20150506
  Receipt Date: 20150506
  Transmission Date: 20150821
  Serious: No
  Sender: FDA-Public Use
  Company Number: US-EISAI MEDICAL RESEARCH-EC-2015-006457

PATIENT
  Age: 33 Year
  Sex: Female
  Weight: 57 kg

DRUGS (3)
  1. BELVIQ [Suspect]
     Active Substance: LORCASERIN HYDROCHLORIDE
     Indication: WEIGHT DECREASED
     Route: 048
     Dates: start: 20150424, end: 20150426
  2. XANAX [Concomitant]
     Active Substance: ALPRAZOLAM
  3. SEROQUEL XR [Concomitant]
     Active Substance: QUETIAPINE FUMARATE

REACTIONS (3)
  - Nausea [Not Recovered/Not Resolved]
  - Heart rate increased [Recovering/Resolving]
  - Fatigue [Not Recovered/Not Resolved]

NARRATIVE: CASE EVENT DATE: 20150424
